FAERS Safety Report 4490756-4 (Version None)
Quarter: 2004Q4

REPORT INFORMATION
  Report Type: 
  Country: None (occurrence: None)
  Receive Date: 20041027
  Receipt Date: 20041004
  Transmission Date: 20050328
  Serious: Yes (Other)
  Sender: FDA-Public Use
  Company Number: 7302

PATIENT
  Age: 37 Year
  Sex: Male

DRUGS (1)
  1. SEPTOCAINE [Suspect]
     Indication: LOCAL ANAESTHESIA
     Dosage: 1 CAPSULE INJECTED
     Dates: start: 20040517

REACTIONS (1)
  - HYPOAESTHESIA ORAL [None]
